FAERS Safety Report 12962186 (Version 1)
Quarter: 2016Q4

REPORT INFORMATION
  Report Type: Spontaneous
  Country: US (occurrence: US)
  Receive Date: 20161121
  Receipt Date: 20161121
  Transmission Date: 20170207
  Serious: No
  Sender: FDA-Public Use
  Company Number: US-PRINSTON PHARMACEUTICAL INC.-2016PRN00114

PATIENT
  Sex: Female

DRUGS (1)
  1. IRBESARTAN. [Suspect]
     Active Substance: IRBESARTAN
     Indication: HYPERTENSION
     Dosage: 300 MG, 1X/DAY
     Route: 048

REACTIONS (5)
  - Pruritus [Unknown]
  - Nightmare [Unknown]
  - Feeling abnormal [Unknown]
  - Sensitivity of teeth [Unknown]
  - Abnormal dreams [Unknown]
